FAERS Safety Report 5660832-9 (Version None)
Quarter: 2008Q1

REPORT INFORMATION
  Report Type: 
  Country: None (occurrence: None)
  Receive Date: 20080311
  Receipt Date: 20080307
  Transmission Date: 20080703
  Serious: Yes (Other)
  Sender: FDA-Public Use
  Company Number: A0707686A

PATIENT
  Sex: Female

DRUGS (3)
  1. ALLI [Suspect]
     Indication: DRUG USE FOR UNKNOWN INDICATION
     Route: 048
  2. CORTICOSTEROIDS [Suspect]
     Indication: DRUG USE FOR UNKNOWN INDICATION
     Route: 065
  3. ANTIBIOTICS [Suspect]
     Indication: DRUG USE FOR UNKNOWN INDICATION
     Route: 065

REACTIONS (8)
  - ASTHMA [None]
  - CERVICAL POLYP [None]
  - COUGH [None]
  - DRUG INEFFECTIVE [None]
  - DRUG WITHDRAWAL HEADACHE [None]
  - INFLUENZA [None]
  - MALAISE [None]
  - WEIGHT INCREASED [None]
